FAERS Safety Report 7911583-9 (Version None)
Quarter: 2011Q4

REPORT INFORMATION
  Report Type: 
  Country: None (occurrence: None)
  Receive Date: 20111109
  Receipt Date: 20111027
  Transmission Date: 20120403
  Serious: Yes (Other)
  Sender: FDA-Public Use
  Company Number: 2011S1001437

PATIENT
  Age: 63 Year
  Sex: Male

DRUGS (1)
  1. LIVALO [Suspect]
     Indication: LOW DENSITY LIPOPROTEIN ABNORMAL
     Dosage: 2 MG; 1X; PO
     Route: 048
     Dates: start: 20110920, end: 20111011

REACTIONS (1)
  - RHABDOMYOLYSIS [None]
